FAERS Safety Report 16650682 (Version 2)
Quarter: 2019Q3

REPORT INFORMATION
  Report Type: Spontaneous
  Country: JP (occurrence: JP)
  Receive Date: 20190731
  Receipt Date: 20190927
  Transmission Date: 20191004
  Serious: Yes (Other)
  Sender: FDA-Public Use
  Company Number: JP-AMGEN-JPNSP2019120479

PATIENT
  Age: 47 Year
  Sex: Female

DRUGS (15)
  1. DECADRON [DEXAMETHASONE SODIUM PHOSPHATE] [Concomitant]
     Dosage: 3.3 MILLIGRAM
     Route: 041
  2. MAGNESIUM OXIDE. [Concomitant]
     Active Substance: MAGNESIUM OXIDE
     Indication: PRODUCT USED FOR UNKNOWN INDICATION
     Dosage: 330 MILLIGRAM, TID (AFTER EACH MEAL, FOR 21 DAYS)
     Route: 048
  3. NORMAL SALINE [Concomitant]
     Active Substance: SODIUM CHLORIDE
     Indication: PRODUCT USED FOR UNKNOWN INDICATION
     Dosage: 100 MILLILITER
     Route: 041
  4. NORMAL SALINE [Concomitant]
     Active Substance: SODIUM CHLORIDE
     Dosage: 250 MILLILITER
     Route: 041
  5. NORMAL SALINE [Concomitant]
     Active Substance: SODIUM CHLORIDE
     Dosage: 50 MILLILITER
     Route: 041
  6. G-LASTA [Suspect]
     Active Substance: PEGFILGRASTIM
     Indication: COLONY STIMULATING FACTOR THERAPY
     Dosage: 3.6 MILLIGRAM
     Route: 058
     Dates: start: 20190708
  7. EPIRUBICIN HYDROCHLORIDE. [Concomitant]
     Active Substance: EPIRUBICIN HYDROCHLORIDE
     Indication: BREAST CANCER
     Dosage: 150 MILLIGRAM, Q2WK
     Route: 041
     Dates: start: 20190523, end: 20190705
  8. ENDOXAN [CYCLOPHOSPHAMIDE MONOHYDRATE] [Concomitant]
     Active Substance: CYCLOPHOSPHAMIDE
     Indication: BREAST CANCER
     Dosage: 1000 MILLIGRAM, Q2WK
     Route: 041
     Dates: start: 20190523, end: 20190705
  9. EMEND [Concomitant]
     Active Substance: APREPITANT
     Indication: PRODUCT USED FOR UNKNOWN INDICATION
     Dosage: 80 MILLIGRAM, QD (AFTER BREAKFAST,FOR 2DAYS)
     Route: 048
  10. LEVOFLOXACIN HEMIHYDRATE [Concomitant]
     Active Substance: LEVOFLOXACIN
     Indication: PRODUCT USED FOR UNKNOWN INDICATION
     Dosage: 500 MILLIGRAM, QD (AFTER BREAKFAST, START WHEN FEVER OF 37.5 DEGREES C OR HIGHER DEVELOPS, FOR 3 DAY
     Route: 048
  11. ALOXI [Concomitant]
     Active Substance: PALONOSETRON HYDROCHLORIDE
     Indication: PRODUCT USED FOR UNKNOWN INDICATION
     Dosage: 0.75 MILLIGRAM
     Route: 041
  12. DECADRON [Concomitant]
     Active Substance: DEXAMETHASONE
     Indication: PRODUCT USED FOR UNKNOWN INDICATION
     Dosage: 4 MILLIGRAM, BID (AFTER BREAKFAST AND LUNCH, START FROM THE DAY AFTER INTRAVENOUS INFUSION, FOR 3 DA
     Route: 048
     Dates: start: 20190705
  13. DECADRON [DEXAMETHASONE SODIUM PHOSPHATE] [Concomitant]
     Indication: PRODUCT USED FOR UNKNOWN INDICATION
     Dosage: 6.6 MILLIGRAM, Q2WK
     Route: 041
     Dates: start: 20190705
  14. EMEND [Concomitant]
     Active Substance: APREPITANT
     Dosage: 125 MILLIGRAM (AT THE START OF INTRAVENOUS INFUSION DURING EXAMINATION)
     Route: 048
  15. PRIMPERAN [Concomitant]
     Active Substance: METOCLOPRAMIDE HYDROCHLORIDE
     Indication: PRODUCT USED FOR UNKNOWN INDICATION
     Dosage: 5 MILLIGRAM, TID (AFTER EACH MEAL, FOR 5 DAYS)
     Route: 048

REACTIONS (1)
  - Blast cell crisis [Recovering/Resolving]

NARRATIVE: CASE EVENT DATE: 20190717
